FAERS Safety Report 7683025-2 (Version None)
Quarter: 2011Q3

REPORT INFORMATION
  Report Type: 
  Country: None (occurrence: None)
  Receive Date: 20110812
  Receipt Date: 20110812
  Transmission Date: 20111222
  Serious: Yes (Other)
  Sender: FDA-Public Use
  Company Number: None

PATIENT
  Age: 67 Year
  Sex: Female
  Weight: 63.5036 kg

DRUGS (2)
  1. CYMBALTA [Suspect]
     Indication: BACK PAIN
     Dosage: 20MG 1 A DAY ORAL
     Route: 048
     Dates: start: 20110709, end: 20110710
  2. CYMBALTA [Suspect]
     Indication: OSTEOARTHRITIS
     Dosage: 20MG 1 A DAY ORAL
     Route: 048
     Dates: start: 20110709, end: 20110710

REACTIONS (5)
  - SOMNOLENCE [None]
  - DISORIENTATION [None]
  - DISTURBANCE IN ATTENTION [None]
  - MOTOR DYSFUNCTION [None]
  - TACHYPHRENIA [None]
